FAERS Safety Report 8110865-8 (Version None)
Quarter: 2012Q1

REPORT INFORMATION
  Report Type: 
  Country: None (occurrence: None)
  Receive Date: 20120203
  Receipt Date: 20120130
  Transmission Date: 20120608
  Serious: Yes (Hospitalization)
  Sender: FDA-Public Use
  Company Number: 2012SP000340

PATIENT
  Age: 88 Year
  Sex: Female
  Weight: 70 kg

DRUGS (9)
  1. EYE DROPS [Concomitant]
     Indication: MACULAR DEGENERATION
     Route: 047
  2. PREVACID [Concomitant]
     Indication: GASTRIC DISORDER
  3. CYMBALTA [Concomitant]
  4. XOPENEX [Suspect]
     Indication: EMPHYSEMA
     Route: 055
     Dates: start: 20050101, end: 20120101
  5. ASPIRIN [Concomitant]
     Indication: PRODUCT USED FOR UNKNOWN INDICATION
     Route: 048
  6. CYMBALTA [Concomitant]
     Indication: NEUROPATHY PERIPHERAL
  7. PREDNISONE TAB [Concomitant]
     Indication: NEUROPATHY PERIPHERAL
     Route: 048
  8. RESTASIS [Concomitant]
     Indication: DRY EYE
     Route: 047
  9. AMBIEN [Concomitant]
     Indication: INSOMNIA

REACTIONS (8)
  - MALAISE [None]
  - DRUG INEFFECTIVE [None]
  - DYSPNOEA [None]
  - WEIGHT DECREASED [None]
  - CHOLELITHIASIS [None]
  - ABDOMINAL PAIN [None]
  - RESPIRATORY TRACT IRRITATION [None]
  - BURNING SENSATION [None]
